FAERS Safety Report 13765225 (Version 2)
Quarter: 2017Q3

REPORT INFORMATION
  Report Type: Spontaneous
  Country: IL (occurrence: IL)
  Receive Date: 20170718
  Receipt Date: 20170821
  Transmission Date: 20171127
  Serious: Yes (Hospitalization)
  Sender: FDA-Public Use
  Company Number: IL-SA-2017SA127731

PATIENT
  Age: 48 Year
  Sex: Female

DRUGS (2)
  1. THYMOGLOBULINE [Suspect]
     Active Substance: LAPINE T-LYMPHOCYTE IMMUNE GLOBULIN
     Indication: TRANSPLANT
     Route: 065
     Dates: start: 20170622, end: 20170623
  2. FENTANYL. [Concomitant]
     Active Substance: FENTANYL
     Route: 065
     Dates: end: 20170710

REACTIONS (7)
  - Dyspnoea [Unknown]
  - Hypophagia [Unknown]
  - Non-cardiogenic pulmonary oedema [Unknown]
  - Mucosal inflammation [Unknown]
  - Hypomagnesaemia [Unknown]
  - Hypophosphataemia [Unknown]
  - Tachypnoea [Unknown]

NARRATIVE: CASE EVENT DATE: 2017
